FAERS Safety Report 14850691 (Version 3)
Quarter: 2018Q2

REPORT INFORMATION
  Report Type: Spontaneous
  Country: US (occurrence: US)
  Receive Date: 20180506
  Receipt Date: 20180607
  Transmission Date: 20180711
  Serious: No
  Sender: FDA-Public Use
  Company Number: US-JNJFOC-20180427445

PATIENT
  Sex: Male
  Weight: 73.48 kg

DRUGS (1)
  1. KETOCONAZOLE. [Suspect]
     Active Substance: KETOCONAZOLE
     Indication: PRODUCT USED FOR UNKNOWN INDICATION
     Route: 061
     Dates: start: 201712

REACTIONS (7)
  - Dandruff [Unknown]
  - Drug ineffective [Unknown]
  - Scratch [Unknown]
  - Folliculitis [Unknown]
  - Seborrhoea [Unknown]
  - Skin lesion [Unknown]
  - Burning sensation [Unknown]
